FAERS Safety Report 5975759-2 (Version None)
Quarter: 2008Q4

REPORT INFORMATION
  Report Type: 
  Country: None (occurrence: None)
  Receive Date: 20081202
  Receipt Date: 20081121
  Transmission Date: 20090506
  Serious: Yes (Disabling, Other)
  Sender: FDA-Public Use
  Company Number: US-MERCK-0805USA02812

PATIENT
  Age: 54 Year
  Sex: Female

DRUGS (1)
  1. FOSAMAX [Suspect]
     Route: 048
     Dates: start: 20000101, end: 20060901

REACTIONS (11)
  - ANXIETY [None]
  - ARTHRITIS [None]
  - DENTAL CARIES [None]
  - DEPRESSION [None]
  - NERVE INJURY [None]
  - OSTEONECROSIS [None]
  - PERIODONTITIS [None]
  - RESORPTION BONE INCREASED [None]
  - SENSITIVITY OF TEETH [None]
  - THYROID DISORDER [None]
  - TOOTH DISORDER [None]
